FAERS Safety Report 18887199 (Version 1)
Quarter: 2021Q1

REPORT INFORMATION
  Report Type: Report from Study
  Country: US (occurrence: US)
  Receive Date: 20210212
  Receipt Date: 20210212
  Transmission Date: 20210420
  Serious: Yes (Hospitalization)
  Sender: FDA-Public Use
  Company Number: US-JNJFOC-20210207708

PATIENT
  Age: 77 Year
  Sex: Female
  Weight: 56.8 kg

DRUGS (4)
  1. ILOPROST. [Suspect]
     Active Substance: ILOPROST
     Indication: PULMONARY HYPERTENSION
  2. DILTIAZEM. [Concomitant]
     Active Substance: DILTIAZEM
  3. REVATIO [Concomitant]
     Active Substance: SILDENAFIL CITRATE
  4. BOSENTAN. [Concomitant]
     Active Substance: BOSENTAN

REACTIONS (1)
  - Transient ischaemic attack [Unknown]

NARRATIVE: CASE EVENT DATE: 20210117
